FAERS Safety Report 9262875 (Version 1)
Quarter: 2013Q2

REPORT INFORMATION
  Report Type: Spontaneous
  Country: US (occurrence: US)
  Receive Date: 20130430
  Receipt Date: 20130430
  Transmission Date: 20140414
  Serious: Yes (Hospitalization)
  Sender: FDA-Public Use
  Company Number: US-PFIZER INC-2013119808

PATIENT
  Age: 66 Year
  Sex: Male

DRUGS (13)
  1. XALATAN [Suspect]
     Indication: GLAUCOMA
     Dosage: 1 GTT, 1X/DAY
     Route: 047
  2. ACETAMINOPHEN W/CODEINE [Concomitant]
     Dosage: UNK
  3. DIAZEPAM [Concomitant]
     Dosage: 10 MG, UNK
  4. GABAPENTIN [Concomitant]
     Dosage: 300 MG, UNK
  5. FLOMAX [Concomitant]
     Dosage: 0.4, UNK
  6. OMEPRAZOLE [Concomitant]
     Dosage: 20 MG, UNK
  7. LIDODERM [Concomitant]
     Dosage: 5%, UNK
  8. AMLODIPINE [Concomitant]
     Dosage: 10 MG, UNK
  9. FUROSEMIDE [Concomitant]
     Dosage: 0.05, UNK
  10. METRONIDAZOLE [Concomitant]
     Dosage: 75%, UNK
     Dates: end: 20130131
  11. ATENOLOL [Concomitant]
     Dosage: 25 MG, UNK
  12. MOVE FREE ULTRA [Concomitant]
     Indication: NUTRITIONAL SUPPLEMENTATION
  13. CENTRUM SILVER [Concomitant]
     Indication: VITAMIN SUPPLEMENTATION
     Dosage: UNK

REACTIONS (1)
  - Gastric stapling [Unknown]
